FAERS Safety Report 10074085 (Version 2)
Quarter: 2014Q2

REPORT INFORMATION
  Report Type: Spontaneous
  Country: IT (occurrence: IT)
  Receive Date: 20140412
  Receipt Date: 20140610
  Transmission Date: 20141212
  Serious: Yes (Other)
  Sender: FDA-Public Use
  Company Number: IT-009507513-1404ITA004960

PATIENT
  Age: 60 Year
  Sex: Male

DRUGS (2)
  1. PEGINTRON [Suspect]
     Indication: HEPATITIS C
     Dosage: 1000 MG, QW
     Route: 058
     Dates: start: 20140207, end: 20140306
  2. COPEGUS [Suspect]
     Indication: HEPATITIS C
     Dosage: 1000 MG, QD
     Route: 048
     Dates: start: 20140207, end: 20140306

REACTIONS (3)
  - Lacrimation increased [Recovered/Resolved]
  - Pain [Recovered/Resolved]
  - Eyelid oedema [Recovered/Resolved]
